FAERS Safety Report 20882311 (Version 2)
Quarter: 2022Q2

REPORT INFORMATION
  Report Type: Other
  Country: CA (occurrence: CA)
  Receive Date: 20220527
  Receipt Date: 20220622
  Transmission Date: 20220721
  Serious: Yes (Other)
  Sender: FDA-Public Use
  Company Number: CA-APOTEX-2022AP008319

PATIENT
  Age: 85 Year
  Sex: Male

DRUGS (6)
  1. AMLODIPINE [Suspect]
     Active Substance: AMLODIPINE BESYLATE
     Indication: Hypertension
     Dosage: UNK
     Route: 065
  2. ATORVASTATIN [Suspect]
     Active Substance: ATORVASTATIN
     Indication: Blood cholesterol
     Dosage: UNK
     Route: 065
  3. ATORVASTATIN [Suspect]
     Active Substance: ATORVASTATIN
     Indication: Blood cholesterol abnormal
  4. TAMSULOSIN [Suspect]
     Active Substance: TAMSULOSIN
     Indication: Benign prostatic hyperplasia
     Dosage: UNK
     Route: 065
  5. OMALIZUMAB [Suspect]
     Active Substance: OMALIZUMAB
     Indication: Product used for unknown indication
     Dosage: UNK
     Route: 065
  6. DUTASTERIDE [Concomitant]
     Active Substance: DUTASTERIDE
     Indication: Benign prostatic hyperplasia
     Dosage: UNK
     Route: 065

REACTIONS (4)
  - Asthma [Unknown]
  - Body mass index increased [Unknown]
  - Chronic obstructive pulmonary disease [Unknown]
  - Lung neoplasm malignant [Unknown]
